FAERS Safety Report 5445423-7 (Version None)
Quarter: 2007Q3

REPORT INFORMATION
  Report Type: 
  Country: None (occurrence: None)
  Receive Date: 20070906
  Receipt Date: 20070628
  Transmission Date: 20080115
  Serious: No
  Sender: FDA-Public Use
  Company Number: A0660739A

PATIENT
  Age: 60 Year
  Sex: Male

DRUGS (4)
  1. REQUIP [Suspect]
     Indication: PARKINSON'S DISEASE
     Dosage: 1.5MG THREE TIMES PER DAY
     Route: 048
     Dates: start: 20070607
  2. CARBIDOPA AND LEVODOPA [Concomitant]
  3. FLOMAX [Concomitant]
  4. LEXAPRO [Concomitant]

REACTIONS (1)
  - FATIGUE [None]
